FAERS Safety Report 9155050 (Version 3)
Quarter: 2013Q2

REPORT INFORMATION
  Report Type: Spontaneous
  Country: CO (occurrence: CO)
  Receive Date: 20130311
  Receipt Date: 20130416
  Transmission Date: 20140414
  Serious: Yes (Other)
  Sender: FDA-Public Use
  Company Number: CO-ROCHE-1200325

PATIENT
  Sex: Male
  Weight: 81 kg

DRUGS (3)
  1. LUCENTIS [Suspect]
     Indication: OPHTHALMOLOGIC TREATMENT
     Dosage: DOSE: 0.3 MG
     Route: 050
     Dates: start: 20121019
  2. LUCENTIS [Suspect]
     Indication: MACULAR DEGENERATION
     Route: 050
     Dates: start: 20130304
  3. GLIBENCLAMIDE [Concomitant]

REACTIONS (2)
  - Blindness [Recovered/Resolved]
  - Eye inflammation [Recovered/Resolved]
